FAERS Safety Report 22155761 (Version 1)
Quarter: 2023Q1

REPORT INFORMATION
  Report Type: Spontaneous
  Country: FR (occurrence: FR)
  Receive Date: 20230330
  Receipt Date: 20230330
  Transmission Date: 20230417
  Serious: Yes (Other)
  Sender: FDA-Public Use
  Company Number: None

PATIENT
  Age: 55 Year
  Sex: Male

DRUGS (1)
  1. ACAMPROSATE [Suspect]
     Active Substance: ACAMPROSATE
     Indication: Product used for unknown indication
     Dosage: 3 DOSAGE FORM, QD (1-1-1)
     Route: 048
     Dates: start: 20221020, end: 202301

REACTIONS (5)
  - Erectile dysfunction [Recovered/Resolved]
  - Mucosal disorder [Recovered/Resolved]
  - Disturbance in sexual arousal [Recovered/Resolved]
  - Sneezing [Recovered/Resolved]
  - Arthralgia [Recovered/Resolved]

NARRATIVE: CASE EVENT DATE: 20221101
